FAERS Safety Report 23285234 (Version 2)
Quarter: 2023Q4

REPORT INFORMATION
  Report Type: Spontaneous
  Country: US (occurrence: None)
  Receive Date: 20231211
  Receipt Date: 20231218
  Transmission Date: 20240110
  Serious: No
  Sender: FDA-Public Use
  Company Number: 2023A276436

PATIENT

DRUGS (1)
  1. FARXIGA [Suspect]
     Active Substance: DAPAGLIFLOZIN PROPANEDIOL
     Route: 048
     Dates: end: 20231205

REACTIONS (3)
  - Dehydration [Recovered/Resolved]
  - Chest pain [Unknown]
  - Sleep disorder due to general medical condition, insomnia type [Unknown]
